FAERS Safety Report 9639792 (Version 1)
Quarter: 2013Q4

REPORT INFORMATION
  Report Type: Spontaneous
  Country: BR (occurrence: BR)
  Receive Date: 20131023
  Receipt Date: 20131023
  Transmission Date: 20140711
  Serious: Yes (Disabling, Other)
  Sender: FDA-Public Use
  Company Number: BR-AMGEN-BRASP2013074307

PATIENT
  Age: 66 Year
  Sex: Female
  Weight: 60 kg

DRUGS (6)
  1. ENBREL [Suspect]
     Indication: RHEUMATOID ARTHRITIS
     Dosage: 50 MG, ONCE WEEKLY
     Route: 058
  2. METHOTREXATE [Concomitant]
     Dosage: 50 MG, WEEKLY (EVERY 7 DAYS)
  3. METICORTEN [Concomitant]
     Dosage: 5 MG, 1X/DAY
  4. MODAFINIL [Concomitant]
     Dosage: 5 MG, 1X/DAY
  5. LOSARTAN [Concomitant]
     Dosage: 50 MG, 1X/DAY
  6. ATENOLOL [Concomitant]
     Dosage: 25 MG, 1X/DAY

REACTIONS (4)
  - Walking disability [Unknown]
  - Femur fracture [Unknown]
  - Fall [Unknown]
  - Injection site pain [Unknown]
